FAERS Safety Report 18159250 (Version 7)
Quarter: 2023Q4

REPORT INFORMATION
  Report Type: Spontaneous
  Country: US (occurrence: US)
  Receive Date: 20200817
  Receipt Date: 20231218
  Transmission Date: 20240110
  Serious: No
  Sender: FDA-Public Use
  Company Number: US-PFIZER INC-2020318045

PATIENT
  Age: 73 Year
  Sex: Female

DRUGS (3)
  1. IBRANCE [Suspect]
     Active Substance: PALBOCICLIB
     Indication: Breast cancer female
     Dosage: DAILY FOR 21 DAYS ON, 7 DAYS OFF ON A 28 DAY CYCLE
     Dates: start: 20200727
  2. IBRANCE [Suspect]
     Active Substance: PALBOCICLIB
     Dosage: 125 MG, 1X/DAY
     Dates: start: 20200901
  3. IBRANCE [Suspect]
     Active Substance: PALBOCICLIB
     Dosage: ONCE EVERY OTHER DAY
     Dates: start: 20201220

REACTIONS (8)
  - Off label use [Unknown]
  - Diarrhoea [Recovered/Resolved]
  - Illness [Unknown]
  - White blood cell count decreased [Recovered/Resolved]
  - Fatigue [Recovering/Resolving]
  - Dyspnoea [Recovering/Resolving]
  - Constipation [Unknown]
  - Nausea [Unknown]

NARRATIVE: CASE EVENT DATE: 20200929
